FAERS Safety Report 9828903 (Version 1)
Quarter: 2014Q1

REPORT INFORMATION
  Report Type: Spontaneous
  Country: US (occurrence: US)
  Receive Date: 20140118
  Receipt Date: 20140118
  Transmission Date: 20141002
  Serious: Yes (Other)
  Sender: FDA-Public Use
  Company Number: US-ABBVIE-14P-163-1189403-00

PATIENT
  Sex: Female

DRUGS (6)
  1. HUMIRA [Suspect]
     Indication: CROHN^S DISEASE
  2. MESALAMINE [Suspect]
     Indication: CROHN^S DISEASE
  3. IMURAN [Suspect]
     Indication: CROHN^S DISEASE
  4. REMICADE [Suspect]
     Indication: CROHN^S DISEASE
  5. PREDNISONE [Suspect]
     Indication: PRODUCT USED FOR UNKNOWN INDICATION
  6. CIMZIA [Concomitant]
     Indication: CROHN^S DISEASE

REACTIONS (2)
  - Intestinal stenosis [Unknown]
  - Drug effect decreased [Unknown]
